FAERS Safety Report 8138461-7 (Version None)
Quarter: 2012Q1

REPORT INFORMATION
  Report Type: 
  Country: None (occurrence: None)
  Receive Date: 20120213
  Receipt Date: 20100827
  Transmission Date: 20120608
  Serious: Yes (Death, Life-Threatening, Hospitalization, Other)
  Sender: FDA-Public Use
  Company Number: 2010002152

PATIENT
  Age: 70 Year
  Sex: Male

DRUGS (6)
  1. CLARITHROMYCIN [Concomitant]
  2. CEFUROXIME [Concomitant]
  3. FLUCLOXACILLIN [Suspect]
     Dosage: 2000 MG (500 MG, 4 IN 1 D), ORAL
     Route: 048
  4. SIMVASTATIN [Suspect]
     Indication: HYPERCHOLESTEROLAEMIA
     Dosage: (40 MG), ORAL
     Route: 048
  5. METRONIDAZOLE [Concomitant]
  6. ERYMAX [Suspect]
     Indication: PSOAS ABSCESS
     Dosage: 1000 MG (250 MG, 4 IN 1 D), ORAL
     Route: 048

REACTIONS (13)
  - DYSPNOEA [None]
  - RHABDOMYOLYSIS [None]
  - NO THERAPEUTIC RESPONSE [None]
  - MYALGIA [None]
  - ANURIA [None]
  - MYOGLOBINURIA [None]
  - ALANINE AMINOTRANSFERASE INCREASED [None]
  - UNRESPONSIVE TO STIMULI [None]
  - DRUG INTERACTION [None]
  - DEVICE RELATED SEPSIS [None]
  - MUSCULAR WEAKNESS [None]
  - HAEMODIALYSIS [None]
  - SEPSIS [None]
